FAERS Safety Report 12621943 (Version 1)
Quarter: 2016Q3

REPORT INFORMATION
  Report Type: Spontaneous
  Country: BR (occurrence: BR)
  Receive Date: 20160804
  Receipt Date: 20160804
  Transmission Date: 20161109
  Serious: Yes (Hospitalization, Other)
  Sender: FDA-Public Use
  Company Number: BR-PFIZER INC-2016368401

PATIENT
  Age: 46 Year
  Sex: Male
  Weight: 143 kg

DRUGS (3)
  1. LYRICA [Suspect]
     Active Substance: PREGABALIN
     Indication: HOMEOPATHY
  2. LYRICA [Suspect]
     Active Substance: PREGABALIN
     Indication: PAIN
     Dosage: 600 MG, DAILY
     Route: 048
     Dates: start: 201602
  3. OXYCONTIN [Concomitant]
     Active Substance: OXYCODONE HYDROCHLORIDE
     Indication: PAIN
     Dosage: UNK
     Dates: start: 201604

REACTIONS (3)
  - Post procedural infection [Unknown]
  - Drug ineffective [Unknown]
  - Intervertebral disc space narrowing [Unknown]

NARRATIVE: CASE EVENT DATE: 2016
